FAERS Safety Report 14675236 (Version 1)
Quarter: 2018Q1

REPORT INFORMATION
  Report Type: Spontaneous
  Country: US (occurrence: US)
  Receive Date: 20180323
  Receipt Date: 20180323
  Transmission Date: 20180509
  Serious: Yes (Other)
  Sender: FDA-Public Use
  Company Number: US-LPDUSPRD-20180354

PATIENT

DRUGS (3)
  1. PROTEASOME INHIBITOR [Suspect]
     Active Substance: UNSPECIFIED INGREDIENT
     Dosage: 4 CYCLES
     Route: 065
  2. DEXAMETHASONE SODIUM PHOSPHATE INJECTION, USP (4901-25) [Suspect]
     Active Substance: DEXAMETHASONE SODIUM PHOSPHATE
     Dosage: 4 CYCLES
     Route: 065
  3. LENALIDOMIDE [Suspect]
     Active Substance: LENALIDOMIDE
     Dosage: 4 CYCLES
     Route: 065

REACTIONS (3)
  - Graft versus host disease [Unknown]
  - Cryptosporidiosis infection [Unknown]
  - Cholecystitis acute [Unknown]
